FAERS Safety Report 8510005-7 (Version None)
Quarter: 2012Q3

REPORT INFORMATION
  Report Type: 
  Country: None (occurrence: None)
  Receive Date: 20120713
  Receipt Date: 20120705
  Transmission Date: 20120928
  Serious: Yes (Other)
  Sender: FDA-Public Use
  Company Number: US-ELI_LILLY_AND_COMPANY-US201206001944

PATIENT
  Sex: Male

DRUGS (1)
  1. FORTEO [Suspect]
     Indication: OSTEOPOROSIS
     Dosage: 20 UG, QD
     Dates: start: 20110801, end: 20120601

REACTIONS (9)
  - MIDDLE INSOMNIA [None]
  - TREMOR [None]
  - MALAISE [None]
  - DEPRESSION [None]
  - HALLUCINATION, AUDITORY [None]
  - MYOCLONIC EPILEPSY [None]
  - DRUG DOSE OMISSION [None]
  - HALLUCINATION [None]
  - ABNORMAL BEHAVIOUR [None]
